FAERS Safety Report 4418436-1 (Version None)
Quarter: 2004Q3

REPORT INFORMATION
  Report Type: 
  Country: None (occurrence: None)
  Receive Date: 20040809
  Receipt Date: 20040428
  Transmission Date: 20050211
  Serious: No
  Sender: FDA-Public Use
  Company Number: US-GLAXOSMITHKLINE-A0508760A

PATIENT
  Age: 61 Year
  Sex: Female

DRUGS (7)
  1. PAXIL CR [Suspect]
     Indication: DEPRESSION
     Dosage: 12.5MG PER DAY
     Route: 048
     Dates: start: 20040403
  2. XANAX [Concomitant]
  3. FLEXERIL [Concomitant]
  4. DARVOCET-N 100 [Concomitant]
  5. HYDROCODONE [Concomitant]
  6. THYROID TAB [Concomitant]
  7. BIAXIN XL [Concomitant]

REACTIONS (2)
  - HEADACHE [None]
  - MUSCLE SPASMS [None]
